FAERS Safety Report 6891110-8 (Version None)
Quarter: 2010Q3

REPORT INFORMATION
  Report Type: 
  Country: None (occurrence: None)
  Receive Date: 20100731
  Receipt Date: 20090601
  Transmission Date: 20110219
  Serious: No
  Sender: FDA-Public Use
  Company Number: US-PFIZER INC-2009221426

PATIENT
  Sex: Male
  Weight: 63.492 kg

DRUGS (2)
  1. LIPITOR [Suspect]
     Indication: BLOOD CHOLESTEROL ABNORMAL
     Dosage: 10MG EVERY OTHER DAY
     Dates: start: 20030101
  2. PREVACID [Concomitant]
     Dosage: UNK

REACTIONS (4)
  - ASTHENIA [None]
  - MYALGIA [None]
  - PAIN [None]
  - WEIGHT DECREASED [None]
